FAERS Safety Report 24978289 (Version 1)
Quarter: 2025Q1

REPORT INFORMATION
  Report Type: Spontaneous
  Country: GB (occurrence: GB)
  Receive Date: 20250217
  Receipt Date: 20250217
  Transmission Date: 20250408
  Serious: Yes (Disabling, Other)
  Sender: ELI LILLY AND COMPANY
  Company Number: GB-ELI_LILLY_AND_COMPANY-GB202502005238

PATIENT
  Age: 59 Year
  Sex: Male
  Weight: 113 kg

DRUGS (13)
  1. TIRZEPATIDE [Suspect]
     Active Substance: TIRZEPATIDE
     Indication: Ill-defined disorder
     Route: 065
     Dates: start: 20240808
  2. INSULIN GLARGINE [Concomitant]
     Active Substance: INSULIN GLARGINE
     Indication: Ill-defined disorder
     Dates: start: 20240425
  3. AMLODIPINE [Concomitant]
     Active Substance: AMLODIPINE BESYLATE
     Indication: Hypertension
     Dates: start: 20240425
  4. AMLODIPINE [Concomitant]
     Active Substance: AMLODIPINE BESYLATE
     Indication: Ill-defined disorder
  5. ATORVASTATIN [Concomitant]
     Active Substance: ATORVASTATIN
     Indication: Blood cholesterol increased
     Dosage: UNK UNK, DAILY
     Dates: start: 20240425
  6. ATORVASTATIN [Concomitant]
     Active Substance: ATORVASTATIN
     Indication: Ill-defined disorder
  7. BISOPROLOL [Concomitant]
     Active Substance: BISOPROLOL
     Indication: Ill-defined disorder
     Dosage: UNK UNK, DAILY
     Dates: start: 20240425
  8. GABAPENTIN [Concomitant]
     Active Substance: GABAPENTIN
     Indication: Ill-defined disorder
     Dosage: UNK UNK, TID
     Dates: start: 20240425
  9. GLICLAZIDE [Concomitant]
     Active Substance: GLICLAZIDE
     Indication: Ill-defined disorder
     Dates: start: 20240425
  10. MICROLET [ETHINYLESTRADIOL;GESTODENE] [Concomitant]
     Indication: Ill-defined disorder
     Dates: start: 20240425
  11. OMEPRAZOLE [Concomitant]
     Active Substance: OMEPRAZOLE
     Indication: Ill-defined disorder
     Dosage: UNK UNK, DAILY
     Dates: start: 20240425
  12. RAMIPRIL [Concomitant]
     Active Substance: RAMIPRIL
     Indication: Hypertension
     Dosage: UNK, DAILY (ONE AT NIGHT)
     Dates: start: 20240425
  13. RAMIPRIL [Concomitant]
     Active Substance: RAMIPRIL
     Indication: Ill-defined disorder

REACTIONS (2)
  - Depression suicidal [Unknown]
  - Off label use [Unknown]
